FAERS Safety Report 8989683 (Version 5)
Quarter: 2013Q2

REPORT INFORMATION
  Report Type: Spontaneous
  Country: US (occurrence: US)
  Receive Date: 20121227
  Receipt Date: 20130611
  Transmission Date: 20140414
  Serious: Yes (Disabling, Other)
  Sender: FDA-Public Use
  Company Number: US-009507513-1212USA010038

PATIENT
  Age: 23 Year
  Sex: Female
  Weight: 98.87 kg

DRUGS (3)
  1. NEXPLANON [Suspect]
     Indication: CONTRACEPTION
     Dosage: ONE 68 MG ROD UP TO 3 YEARS
     Route: 059
     Dates: start: 20120921
  2. NORVASC [Concomitant]
  3. HYDROCHLOROTHIAZIDE [Concomitant]
     Route: 048

REACTIONS (8)
  - Feeling jittery [Recovered/Resolved]
  - Malaise [Unknown]
  - Blood iron decreased [Unknown]
  - Dizziness [Recovered/Resolved]
  - Metrorrhagia [Unknown]
  - Anxiety [Recovered/Resolved]
  - Poor quality sleep [Unknown]
  - Hypertension [Recovered/Resolved]
